FAERS Safety Report 14475955 (Version 1)
Quarter: 2018Q1

REPORT INFORMATION
  Report Type: Spontaneous
  Country: IT (occurrence: IT)
  Receive Date: 20180201
  Receipt Date: 20180201
  Transmission Date: 20180509
  Serious: Yes (Hospitalization)
  Sender: FDA-Public Use
  Company Number: IT-PFIZER INC-2018040264

PATIENT
  Age: 36 Year
  Sex: Male

DRUGS (3)
  1. IMODIUM [Suspect]
     Active Substance: LOPERAMIDE HYDROCHLORIDE
     Dosage: 3 DF, TOTAL
     Route: 048
     Dates: start: 20180102, end: 20180102
  2. MINIAS [Suspect]
     Active Substance: LORMETAZEPAM
     Dosage: 15 GTT, TOTAL
     Route: 048
     Dates: start: 20180102, end: 20180102
  3. LYRICA [Suspect]
     Active Substance: PREGABALIN
     Dosage: 3 DF, TOTAL
     Route: 048
     Dates: start: 20180102

REACTIONS (3)
  - Confusional state [Recovered/Resolved]
  - Agitation [Recovered/Resolved]
  - Drug abuse [Unknown]

NARRATIVE: CASE EVENT DATE: 20180102
